FAERS Safety Report 4574104-7 (Version None)
Quarter: 2005Q1

REPORT INFORMATION
  Report Type: 
  Country: None (occurrence: None)
  Receive Date: 20050208
  Receipt Date: 20041015
  Transmission Date: 20050727
  Serious: No
  Sender: FDA-Public Use
  Company Number: US-GLAXOSMITHKLINE-A0530104B

PATIENT
  Age: 80 Year
  Sex: Female

DRUGS (8)
  1. PAXIL [Suspect]
     Indication: PANIC ATTACK
     Route: 048
     Dates: start: 20040101, end: 20040901
  2. CELEBREX [Concomitant]
     Indication: SCIATICA
  3. COREG [Concomitant]
     Indication: HYPERTENSION
  4. SYNTHROID [Concomitant]
     Indication: HYPOTHYROIDISM
  5. CLARINEX [Concomitant]
  6. BIOTIN [Concomitant]
  7. FOLIC ACID [Concomitant]
  8. OS-CAL 500+D TABLETS [Concomitant]
     Route: 048

REACTIONS (1)
  - WEIGHT INCREASED [None]
